FAERS Safety Report 15886658 (Version 3)
Quarter: 2019Q1

REPORT INFORMATION
  Report Type: Report from Study
  Country: US (occurrence: US)
  Receive Date: 20190129
  Receipt Date: 20190315
  Transmission Date: 20190417
  Serious: No
  Sender: FDA-Public Use
  Company Number: PHEH2019US003437

PATIENT
  Sex: Female
  Weight: 61.23 kg

DRUGS (2)
  1. COSENTYX [Suspect]
     Active Substance: SECUKINUMAB
     Indication: PSORIASIS
     Dosage: 300 MG, QMO
     Route: 058
     Dates: start: 20171201
  2. COSENTYX [Suspect]
     Active Substance: SECUKINUMAB
     Dosage: 300 MG, QMO
     Route: 058
     Dates: start: 20181210

REACTIONS (3)
  - Fatigue [Recovered/Resolved]
  - Mumps [Recovered/Resolved]
  - Parotid gland enlargement [Recovered/Resolved]

NARRATIVE: CASE EVENT DATE: 20181219
